FAERS Safety Report 18725471 (Version 1)
Quarter: 2021Q1

REPORT INFORMATION
  Report Type: Spontaneous
  Country: US (occurrence: US)
  Receive Date: 20210111
  Receipt Date: 20210111
  Transmission Date: 20210419
  Serious: Yes (Other)
  Sender: FDA-Public Use
  Company Number: US-MYLANLABS-2021M1000439

PATIENT
  Age: 85 Year
  Sex: Male

DRUGS (5)
  1. METOLAZONE. [Suspect]
     Active Substance: METOLAZONE
     Indication: PRODUCT USED FOR UNKNOWN INDICATION
     Dosage: 2.5 MILLIGRAM, QD
     Route: 065
  2. BUMETANIDE. [Suspect]
     Active Substance: BUMETANIDE
     Indication: PRODUCT USED FOR UNKNOWN INDICATION
     Dosage: 3 MILLIGRAM, BID
     Route: 065
  3. BUMETANIDE. [Suspect]
     Active Substance: BUMETANIDE
     Dosage: DOSE INCREASED DUE....
     Route: 065
  4. GABAPENTIN. [Suspect]
     Active Substance: GABAPENTIN
     Indication: PRODUCT USED FOR UNKNOWN INDICATION
     Dosage: 600 MILLIGRAM, TID
     Route: 065
  5. METOLAZONE. [Suspect]
     Active Substance: METOLAZONE
     Dosage: DOSE INCREASED DUE....
     Route: 065

REACTIONS (4)
  - Blood creatinine increased [Recovering/Resolving]
  - Drug ineffective [Unknown]
  - Acute kidney injury [Unknown]
  - Oedema peripheral [Recovered/Resolved]
